FAERS Safety Report 19992558 (Version 1)
Quarter: 2021Q4

REPORT INFORMATION
  Report Type: Other
  Country: CN (occurrence: CN)
  Receive Date: 20211026
  Receipt Date: 20211026
  Transmission Date: 20220303
  Serious: No
  Sender: FDA-Public Use
  Company Number: CN-HANGZHOU MINSHENG BINJIANG PHARMACEUTICAL CO., LTD.-2120980

PATIENT
  Age: 75 Year
  Sex: Female

DRUGS (1)
  1. ALENDRONATE SODIUM [Suspect]
     Active Substance: ALENDRONATE SODIUM
     Indication: Senile osteoporosis
     Route: 048
     Dates: start: 20210801, end: 20210801

REACTIONS (1)
  - Blood pressure increased [Recovered/Resolved]

NARRATIVE: CASE EVENT DATE: 20210801
